FAERS Safety Report 4801588-9 (Version None)
Quarter: 2005Q4

REPORT INFORMATION
  Report Type: 
  Country: None (occurrence: None)
  Receive Date: 20051011
  Receipt Date: 20050930
  Transmission Date: 20060501
  Serious: Yes (Other)
  Sender: FDA-Public Use
  Company Number: 2005113755

PATIENT
  Age: 51 Year
  Sex: Female
  Weight: 84.369 kg

DRUGS (12)
  1. LIPITOR [Suspect]
     Indication: BLOOD CHOLESTEROL INCREASED
     Dosage: 20 MG (20 MG, 1 IN 1 D)
     Dates: start: 20040201, end: 20041101
  2. LIPITOR [Suspect]
     Indication: HYPERLIPIDAEMIA
     Dosage: 20 MG (20 MG, 1 IN 1 D)
     Dates: start: 20040201, end: 20041101
  3. HUMULIN N [Concomitant]
  4. HUMALOG [Concomitant]
  5. VERAPAMIL [Concomitant]
  6. LISINOPRIL [Concomitant]
  7. HYDROCHLOROTHIAZIDE [Concomitant]
  8. PREVACID [Concomitant]
  9. EFFEXOR XR [Concomitant]
  10. COMBIVENT [Concomitant]
  11. ASPIRIN [Concomitant]
  12. VERAPAMIL - SLOW RELEASE (VERAPAMIL HYDROCHLORIDE) [Concomitant]

REACTIONS (8)
  - ASTHENIA [None]
  - BLOOD GLUCOSE INCREASED [None]
  - FLANK PAIN [None]
  - GASTROINTESTINAL HYPOMOTILITY [None]
  - MOVEMENT DISORDER [None]
  - MUSCULAR WEAKNESS [None]
  - PAIN IN EXTREMITY [None]
  - PROTEIN URINE PRESENT [None]
